FAERS Safety Report 6739036-4 (Version None)
Quarter: 2010Q2

REPORT INFORMATION
  Report Type: 
  Country: None (occurrence: None)
  Receive Date: 20100524
  Receipt Date: 20100524
  Transmission Date: 20101027
  Serious: Yes (Other)
  Sender: FDA-Public Use
  Company Number: None

PATIENT
  Age: 42 Year
  Sex: Female
  Weight: 136.0791 kg

DRUGS (1)
  1. CITALOPRAM HYDROBROMIDE [Suspect]
     Indication: DEPRESSION
     Dosage: 1 TABLET ONCE A DAY PO
     Route: 048
     Dates: start: 20100511, end: 20100517

REACTIONS (7)
  - DIZZINESS [None]
  - FURUNCLE [None]
  - NO THERAPEUTIC RESPONSE [None]
  - PALPITATIONS [None]
  - PRURITUS [None]
  - SKIN REACTION [None]
  - URTICARIA [None]
